FAERS Safety Report 5069947-X (Version None)
Quarter: 2006Q3

REPORT INFORMATION
  Report Type: 
  Country: None (occurrence: None)
  Receive Date: 20060731
  Receipt Date: 20060221
  Transmission Date: 20061208
  Serious: Yes (Hospitalization)
  Sender: FDA-Public Use
  Company Number: HQWYE337027SEP04

PATIENT
  Age: 33 Year
  Sex: Male

DRUGS (5)
  1. NEORAL, CONTROL FOR SIROLIMUS (CYCLOSPORINE, CONTROL FOR SIROLIMUS, UN [Suspect]
     Indication: PROPHYLAXIS AGAINST TRANSPLANT REJECTION
     Dosage: 75 MG 1X PER 12 HR, ORAL
     Route: 048
     Dates: start: 20031008, end: 20040902
  2. ALLOPURINOL [Concomitant]
  3. PRAVASTATIN [Concomitant]
  4. MYCOPHENOLATE MOFETIL [Concomitant]
  5. PREDNISONE TAB [Concomitant]

REACTIONS (6)
  - AZOTAEMIA [None]
  - CHRONIC ALLOGRAFT NEPHROPATHY [None]
  - CYTOMEGALOVIRUS INFECTION [None]
  - DRUG TOXICITY [None]
  - HAEMOGLOBIN DECREASED [None]
  - NEPHRITIS INTERSTITIAL [None]
